FAERS Safety Report 7901077-9 (Version None)
Quarter: 2011Q4

REPORT INFORMATION
  Report Type: 
  Country: None (occurrence: None)
  Receive Date: 20111108
  Receipt Date: 20111102
  Transmission Date: 20120403
  Serious: Yes (Disabling)
  Sender: FDA-Public Use
  Company Number: US-ELI_LILLY_AND_COMPANY-US201111001892

PATIENT
  Age: 57 Year
  Sex: Female
  Weight: 85.714 kg

DRUGS (3)
  1. TREPROSTINIL [Concomitant]
     Indication: PULMONARY ARTERIAL HYPERTENSION
     Dosage: 9 DF, QID
     Route: 055
     Dates: start: 20110725
  2. DIURETICS [Concomitant]
  3. ADCIRCA [Suspect]

REACTIONS (1)
  - LIPOMA [None]
